FAERS Safety Report 8367608-2 (Version None)
Quarter: 2012Q2

REPORT INFORMATION
  Report Type: 
  Country: None (occurrence: None)
  Receive Date: 20120517
  Receipt Date: 20120507
  Transmission Date: 20120825
  Serious: Yes (Other)
  Sender: FDA-Public Use
  Company Number: FR-ALLERGAN-1206477US

PATIENT
  Age: 82 Year
  Sex: Male

DRUGS (8)
  1. IOPIDINE                           /00948501/ [Concomitant]
     Dosage: UNK
     Dates: start: 20110202, end: 20110220
  2. PREVISCAN                          /00261401/ [Concomitant]
  3. LUCENTIS [Concomitant]
     Dosage: UNK
     Dates: start: 20110609
  4. OFLOXACIN [Suspect]
     Indication: PRODUCT USED FOR UNKNOWN INDICATION
     Dosage: UNK
     Dates: start: 20110201, end: 20110206
  5. LUCENTIS [Concomitant]
     Indication: AGE-RELATED MACULAR DEGENERATION
     Dosage: UNK
     Dates: start: 20110202
  6. XATRAL                             /00975301/ [Concomitant]
     Dosage: 10 MG, QD
     Route: 048
     Dates: start: 20060101
  7. LACRIGEL                           /01282201/ [Concomitant]
     Dosage: UNK
     Dates: start: 20110202, end: 20110206
  8. PERMIXON                           /00833501/ [Concomitant]
     Dosage: 2 DF, QD

REACTIONS (1)
  - RETINAL PIGMENT EPITHELIAL TEAR [None]
